FAERS Safety Report 11261726 (Version 1)
Quarter: 2015Q3

REPORT INFORMATION
  Report Type: Not Available
  Country: ES (occurrence: ES)
  Receive Date: 20150710
  Receipt Date: 20150710
  Transmission Date: 20151125
  Serious: Yes (Other)
  Sender: FDA-Public Use
  Company Number: ES-MUNDIPHARMA DS AND PHARMACOVIGILANCE-DEU-2015-0016963

PATIENT
  Age: 75 Year
  Sex: Female

DRUGS (1)
  1. TARGIN 10MG/5MG COMPRIMIDOS DE LIBERACION PROLONGADA [Suspect]
     Active Substance: NALOXONE HYDROCHLORIDE\OXYCODONE HYDROCHLORIDE
     Indication: PAIN
     Dosage: 20/10 MG, DAILY
     Route: 048
     Dates: start: 20140718, end: 20150119

REACTIONS (4)
  - Dry mouth [Recovered/Resolved]
  - Aphthous ulcer [Recovered/Resolved]
  - Abnormal sensation in eye [Recovered/Resolved]
  - Weight decreased [Recovered/Resolved]

NARRATIVE: CASE EVENT DATE: 201407
